FAERS Safety Report 15406354 (Version 5)
Quarter: 2019Q3

REPORT INFORMATION
  Report Type: Report from Study
  Country: US (occurrence: US)
  Receive Date: 20180920
  Receipt Date: 20190802
  Transmission Date: 20191004
  Serious: Yes (Other)
  Sender: FDA-Public Use
  Company Number: PHEH2018US038084

PATIENT
  Age: 31 Year
  Sex: Female

DRUGS (1)
  1. GILENYA [Suspect]
     Active Substance: FINGOLIMOD HYDROCHLORIDE
     Indication: MULTIPLE SCLEROSIS
     Dosage: 0.5 MG, QD
     Route: 048
     Dates: start: 20180310, end: 2018

REACTIONS (4)
  - Multiple sclerosis relapse [Unknown]
  - Optic neuritis [Unknown]
  - Vision blurred [Recovered/Resolved]
  - Liver function test increased [Unknown]

NARRATIVE: CASE EVENT DATE: 201807
